FAERS Safety Report 6759632-8 (Version None)
Quarter: 2010Q2

REPORT INFORMATION
  Report Type: 
  Country: None (occurrence: None)
  Receive Date: 20100608
  Receipt Date: 20100601
  Transmission Date: 20101027
  Serious: Yes (Death, Hospitalization)
  Sender: FDA-Public Use
  Company Number: 2008BI004532

PATIENT
  Age: 59 Year
  Sex: Female
  Weight: 67 kg

DRUGS (2)
  1. AVONEX [Suspect]
     Indication: MULTIPLE SCLEROSIS
     Route: 030
     Dates: start: 19960101, end: 20030101
  2. AVONEX [Suspect]
     Route: 030
     Dates: start: 20030101

REACTIONS (7)
  - ADRENAL MASS [None]
  - ARTHRITIS [None]
  - BREAST CALCIFICATIONS [None]
  - BREAST CANCER STAGE III [None]
  - FIBROCYSTIC BREAST DISEASE [None]
  - HEPATIC CYST [None]
  - INCISION SITE COMPLICATION [None]
